FAERS Safety Report 18384912 (Version 1)
Quarter: 2020Q4

REPORT INFORMATION
  Report Type: Spontaneous
  Country: US (occurrence: US)
  Receive Date: 20201015
  Receipt Date: 20201015
  Transmission Date: 20210114
  Serious: No
  Sender: FDA-Public Use
  Company Number: US-GW PHARMA-202010USGW03471

PATIENT

DRUGS (1)
  1. EPIDIOLEX [Suspect]
     Active Substance: CANNABIDIOL
     Indication: JUVENILE MYOCLONIC EPILEPSY
     Dosage: 1600 MILLIGRAM, QD (1000 MILLIGRAM QAM, 600 MILLIGRAM IN THE EVENING)
     Route: 048
     Dates: start: 20200624

REACTIONS (4)
  - Product taste abnormal [Unknown]
  - Vomiting [Unknown]
  - Incorrect dose administered [Unknown]
  - Product use in unapproved indication [Unknown]

NARRATIVE: CASE EVENT DATE: 2020
